FAERS Safety Report 23326584 (Version 1)
Quarter: 2023Q4

REPORT INFORMATION
  Report Type: Spontaneous
  Country: US (occurrence: US)
  Receive Date: 20231221
  Receipt Date: 20231221
  Transmission Date: 20240110
  Serious: No
  Sender: FDA-Public Use
  Company Number: US-JAZZ PHARMACEUTICALS-2023-US-019753

PATIENT
  Sex: Female

DRUGS (2)
  1. ZEPZELCA [Suspect]
     Active Substance: LURBINECTEDIN
     Indication: Lung neoplasm malignant
     Dosage: 6 MILLIGRAM
     Dates: start: 20230720
  2. ZEPZELCA [Suspect]
     Active Substance: LURBINECTEDIN
     Dosage: 6 MILLIGRAM
     Dates: start: 20230810

REACTIONS (1)
  - Fatigue [Unknown]
